FAERS Safety Report 9019443 (Version 2)
Quarter: 2013Q2

REPORT INFORMATION
  Report Type: Spontaneous
  Country: DE (occurrence: DE)
  Receive Date: 20130118
  Receipt Date: 20130429
  Transmission Date: 20140414
  Serious: Yes (Other)
  Sender: FDA-Public Use
  Company Number: DE-ASTRAZENECA-2013SE02400

PATIENT
  Age: 26451 Day
  Sex: Female
  Weight: 77 kg

DRUGS (10)
  1. BRILIQUE [Suspect]
     Route: 048
     Dates: start: 20121221
  2. METFORMIN [Concomitant]
  3. METOPROLOL SUCC [Concomitant]
  4. HCT [Concomitant]
  5. PANTOPRAZOLE [Concomitant]
  6. RAMIPRIL 5/AMLO 5 [Concomitant]
     Dosage: 5 MG /5 MG
  7. ASS [Concomitant]
  8. SIMVASTATIN [Concomitant]
  9. INSUMAN RAPID [Concomitant]
  10. INSUMAN COMB 25 [Concomitant]

REACTIONS (1)
  - Rash generalised [Recovered/Resolved]
